FAERS Safety Report 16971114 (Version 3)
Quarter: 2019Q4

REPORT INFORMATION
  Report Type: Spontaneous
  Country: US (occurrence: US)
  Receive Date: 20191029
  Receipt Date: 20191216
  Transmission Date: 20200122
  Serious: No
  Sender: FDA-Public Use
  Company Number: US-LEXICON PHARMACEUTICALS, INC-19-1606-00866

PATIENT
  Sex: Male

DRUGS (2)
  1. LANREOTIDE [Suspect]
     Active Substance: LANREOTIDE
  2. XERMELO [Suspect]
     Active Substance: TELOTRISTAT ETHYL
     Indication: CARCINOID TUMOUR
     Route: 048
     Dates: start: 20190817

REACTIONS (3)
  - Product dose omission [Recovered/Resolved]
  - Constipation [Recovering/Resolving]
  - Product dose omission [Recovered/Resolved]

NARRATIVE: CASE EVENT DATE: 2019
